FAERS Safety Report 19651028 (Version 3)
Quarter: 2021Q3

REPORT INFORMATION
  Report Type: Report from Study
  Country: None (occurrence: US)
  Receive Date: 20210802
  Receipt Date: 20210809
  Transmission Date: 20211014
  Serious: Yes (Hospitalization, Other)
  Sender: FDA-Public Use
  Company Number: US-ABBVIE-21K-163-3976292-00

PATIENT
  Age: 64 Year
  Sex: Male
  Weight: 95.34 kg

DRUGS (13)
  1. PFIZER?BIONTECH COVID?19 VACCINE [Concomitant]
     Active Substance: TOZINAMERAN
     Indication: COVID-19 IMMUNISATION
     Route: 030
     Dates: start: 20210313, end: 20210313
  2. PFIZER?BIONTECH COVID?19 VACCINE [Concomitant]
     Active Substance: TOZINAMERAN
     Route: 030
     Dates: start: 20210410, end: 20210410
  3. PLAQUENIL [Concomitant]
     Active Substance: HYDROXYCHLOROQUINE SULFATE
     Indication: POLYMYALGIA RHEUMATICA
  4. ROSUVASTATIN. [Concomitant]
     Active Substance: ROSUVASTATIN
     Indication: ANEURYSM
  5. LOSARTAN. [Concomitant]
     Active Substance: LOSARTAN
     Indication: ANEURYSM
  6. CARVEDILOL. [Concomitant]
     Active Substance: CARVEDILOL
     Indication: ANEURYSM
  7. TIZANIDINE. [Concomitant]
     Active Substance: TIZANIDINE
     Indication: SLEEP DISORDER THERAPY
  8. HUMIRA [Suspect]
     Active Substance: ADALIMUMAB
     Indication: PSORIASIS
     Dosage: CITRATE FREE
     Route: 058
     Dates: start: 20210225, end: 20210624
  9. COLCHICINE. [Concomitant]
     Active Substance: COLCHICINE
     Indication: POLYMYALGIA RHEUMATICA
  10. VENTOLIN [Concomitant]
     Active Substance: ALBUTEROL SULFATE
     Indication: ASTHMA
  11. PREDNISONE. [Concomitant]
     Active Substance: PREDNISONE
     Indication: POLYMYALGIA RHEUMATICA
  12. METHOTREXATE. [Concomitant]
     Active Substance: METHOTREXATE
     Indication: POLYMYALGIA RHEUMATICA
  13. FOLIC ACID. [Concomitant]
     Active Substance: FOLIC ACID
     Indication: SUPPLEMENTATION THERAPY

REACTIONS (14)
  - Pneumothorax [Recovering/Resolving]
  - Legionella test positive [Recovering/Resolving]
  - Immunoglobulins increased [Recovered/Resolved]
  - Septic shock [Unknown]
  - Pneumonia [Recovering/Resolving]
  - Pneumonia legionella [Recovering/Resolving]
  - Arthralgia [Recovered/Resolved]
  - Hypersomnia [Recovering/Resolving]
  - Red blood cell count decreased [Recovered/Resolved]
  - Lymphocyte count decreased [Recovered/Resolved]
  - Blood pH increased [Unknown]
  - Neutrophil count increased [Recovered/Resolved]
  - Monocyte count decreased [Recovered/Resolved]
  - White blood cell count increased [Recovered/Resolved]

NARRATIVE: CASE EVENT DATE: 20210621
